FAERS Safety Report 17822802 (Version 1)
Quarter: 2020Q2

REPORT INFORMATION
  Report Type: Spontaneous
  Country: US (occurrence: US)
  Receive Date: 20200526
  Receipt Date: 20200526
  Transmission Date: 20200714
  Serious: No
  Sender: FDA-Public Use
  Company Number: US-JNJFOC-20200428333

PATIENT
  Age: 34 Year
  Sex: Male
  Weight: 86.26 kg

DRUGS (1)
  1. VISINE A MULTI-ACTION EYE ALLERGY RELIEF [Suspect]
     Active Substance: NAPHAZOLINE HYDROCHLORIDE\PHENIRAMINE MALEATE
     Indication: EYE PRURITUS
     Dosage: SQUIRTED ONE DROP IN EACH EYE. ?LAST ADMINISTRATION DATE: 19/APR/2020
     Route: 047
     Dates: start: 20200416

REACTIONS (2)
  - Pupils unequal [Recovered/Resolved]
  - Malaise [Recovered/Resolved]

NARRATIVE: CASE EVENT DATE: 20200416
